FAERS Safety Report 23021259 (Version 4)
Quarter: 2024Q1

REPORT INFORMATION
  Report Type: Spontaneous
  Country: JP (occurrence: JP)
  Receive Date: 20231003
  Receipt Date: 20240123
  Transmission Date: 20240410
  Serious: Yes (Hospitalization, Other)
  Sender: FDA-Public Use
  Company Number: JP-OTSUKA-2023_022391

PATIENT
  Age: 23 Year
  Sex: Female

DRUGS (10)
  1. ABILIFY [Suspect]
     Active Substance: ARIPIPRAZOLE
     Indication: Schizophrenia
     Dosage: 3MG/DAY
     Route: 048
     Dates: start: 20200321, end: 20220304
  2. ABILIFY [Suspect]
     Active Substance: ARIPIPRAZOLE
     Dosage: UNK
     Route: 048
     Dates: start: 201603
  3. ABILIFY [Suspect]
     Active Substance: ARIPIPRAZOLE
     Dosage: 4MG/DAY
     Route: 048
     Dates: start: 20220305, end: 20220311
  4. ABILIFY [Suspect]
     Active Substance: ARIPIPRAZOLE
     Dosage: 3MG/DAY
     Route: 048
     Dates: start: 20220312, end: 20220603
  5. ABILIFY [Suspect]
     Active Substance: ARIPIPRAZOLE
     Dosage: 3MG/DAY (ORALLY TOOK ARIPIPRAZOLE SOMETIMES AND DID NOT TAKE IT SOMETIMES)
     Route: 048
     Dates: start: 20220716, end: 20220813
  6. ABILIFY [Suspect]
     Active Substance: ARIPIPRAZOLE
     Dosage: UNK
     Route: 048
     Dates: start: 202208, end: 202209
  7. ABILIFY [Suspect]
     Active Substance: ARIPIPRAZOLE
     Indication: Product used for unknown indication
     Dosage: UNK
     Route: 065
     Dates: start: 201707, end: 202203
  8. LOXOPROFEN SODIUM [Concomitant]
     Active Substance: LOXOPROFEN SODIUM
     Indication: Product used for unknown indication
     Dosage: 60 MG/DAY, PRN (ORALLY TOOK IT IRREGULARLY)
     Route: 048
  9. REBAMIPIDE [Concomitant]
     Active Substance: REBAMIPIDE
     Indication: Product used for unknown indication
     Dosage: 100 MG/DAY
     Route: 048
  10. DAYVIGO [Concomitant]
     Active Substance: LEMBOREXANT
     Indication: Product used for unknown indication
     Dosage: 2.5 MG/DAY
     Route: 048
     Dates: start: 20220305, end: 20220311

REACTIONS (5)
  - Hallucination [Recovered/Resolved]
  - Dystonia [Recovered/Resolved]
  - Dissociative disorder [Recovered/Resolved]
  - Delusion [Recovered/Resolved]
  - Treatment noncompliance [Unknown]

NARRATIVE: CASE EVENT DATE: 20220716
